FAERS Safety Report 7913292-9 (Version None)
Quarter: 2011Q4

REPORT INFORMATION
  Report Type: 
  Country: None (occurrence: None)
  Receive Date: 20111114
  Receipt Date: 20111103
  Transmission Date: 20120403
  Serious: Yes (Hospitalization)
  Sender: FDA-Public Use
  Company Number: FR-ASTRAZENECA-2011SE66584

PATIENT
  Age: 50 Year
  Sex: Male

DRUGS (4)
  1. AUGMENTIN [Suspect]
     Dosage: 500MG/100MG, ONCE/SINGLE ADMINISTRATION
     Route: 042
     Dates: start: 20111005, end: 20111005
  2. DIPRIVAN [Suspect]
     Dosage: ONCE/SINGLE ADMINISTRATION
     Route: 042
     Dates: start: 20111005, end: 20111005
  3. MIDAZOLAM HCL [Suspect]
     Dosage: ONCE/SINGLE ADMINISTRATION
     Route: 042
     Dates: start: 20111005, end: 20111005
  4. XYLOCAINE [Suspect]
     Dosage: 100MG/10ML, ONCE/SINGLE ADMINISTRATION
     Route: 042
     Dates: start: 20111005, end: 20111005

REACTIONS (2)
  - PROCEDURAL HYPOTENSION [None]
  - AIRWAY COMPLICATION OF ANAESTHESIA [None]
